FAERS Safety Report 14730787 (Version 1)
Quarter: 2018Q2

REPORT INFORMATION
  Report Type: Spontaneous
  Country: FR (occurrence: FR)
  Receive Date: 20180406
  Receipt Date: 20180406
  Transmission Date: 20180711
  Serious: Yes (Hospitalization)
  Sender: FDA-Public Use
  Company Number: FR-BAUSCH-BL-2018-008516

PATIENT
  Age: 81 Year
  Sex: Female

DRUGS (21)
  1. OXYCONTIN [Concomitant]
     Active Substance: OXYCODONE HYDROCHLORIDE
     Indication: MUSCULOSKELETAL PAIN
  2. DERMOVATE [Concomitant]
     Active Substance: CLOBETASOL
     Indication: NEUTROPHILIC DERMATOSIS
     Dosage: ONE UNSPECIFIED UNIT DAILY
     Route: 061
     Dates: start: 20160809
  3. DIFFU K [Concomitant]
     Active Substance: POTASSIUM CHLORIDE
     Indication: HYPOKALAEMIA
     Route: 048
     Dates: start: 20161004
  4. INEXIUM [Concomitant]
     Active Substance: ESOMEPRAZOLE
     Indication: GASTROINTESTINAL DISORDER THERAPY
     Route: 048
     Dates: start: 20160418
  5. CLOBETASOL [Concomitant]
     Active Substance: CLOBETASOL
     Indication: ARTHROPOD BITE
     Route: 065
  6. REVLIMID [Suspect]
     Active Substance: LENALIDOMIDE
     Dosage: ONE UNIT UNSPCIFIED DAILY?DOSE REDUCED
     Route: 048
     Dates: start: 20161110
  7. REVLIMID [Suspect]
     Active Substance: LENALIDOMIDE
     Dosage: ONE UNIT UNSPCIFIED DAILY
     Route: 048
     Dates: end: 20161128
  8. BACTRIM [Concomitant]
     Active Substance: SULFAMETHOXAZOLE\TRIMETHOPRIM
     Indication: ANTIBIOTIC PROPHYLAXIS
     Dosage: 800 MG, 2400 MG IN ONE WEEK
     Route: 048
     Dates: start: 20160418
  9. DERMOVATE [Concomitant]
     Active Substance: CLOBETASOL
     Indication: ARTHROPOD STING
     Dosage: ONE UNSPECIFIED UNIT DAILY
     Route: 061
     Dates: start: 20160409
  10. PARACETAMOL [Concomitant]
     Active Substance: ACETAMINOPHEN
     Indication: PAIN
     Route: 048
     Dates: start: 20160204
  11. NEO-DEX [Concomitant]
     Active Substance: DEXTROMETHORPHAN HYDROBROMIDE
     Indication: PRODUCT USED FOR UNKNOWN INDICATION
     Dosage: 20 MILLIGRAM IN ONE WEEK
     Route: 065
  12. OXYCONTIN [Concomitant]
     Active Substance: OXYCODONE HYDROCHLORIDE
     Indication: ARTHRALGIA
  13. LOVENOX [Concomitant]
     Active Substance: ENOXAPARIN SODIUM
     Indication: THROMBOSIS PROPHYLAXIS
     Route: 058
     Dates: start: 20160222
  14. DAFALGAN [Concomitant]
     Active Substance: ACETAMINOPHEN
     Indication: PRODUCT USED FOR UNKNOWN INDICATION
     Route: 065
  15. DEXAMETHASONE. [Suspect]
     Active Substance: DEXAMETHASONE
     Indication: PLASMA CELL MYELOMA
     Dosage: 20 MG WEEKLY
     Route: 065
     Dates: start: 20160222, end: 20161201
  16. REVLIMID [Suspect]
     Active Substance: LENALIDOMIDE
     Indication: PLASMA CELL MYELOMA
     Route: 048
     Dates: start: 20160222
  17. FORTIMEL [Concomitant]
     Active Substance: DIETARY SUPPLEMENT
     Indication: WEIGHT DECREASED
     Dosage: 2 UNSPECIFIED UNIT DAILY
     Route: 048
     Dates: start: 20161103
  18. ZELITREX [Concomitant]
     Active Substance: VALACYCLOVIR HYDROCHLORIDE
     Indication: RASH PUSTULAR
     Route: 048
     Dates: start: 20160418
  19. OXYCONTIN [Concomitant]
     Active Substance: OXYCODONE HYDROCHLORIDE
     Indication: ARTHRALGIA
     Route: 048
     Dates: start: 20160905
  20. TIORFAN [Concomitant]
     Active Substance: RACECADOTRIL
     Indication: DIARRHOEA
     Dosage: ONE UNSPECIFIED UNIT DAILY
     Route: 048
     Dates: start: 20160905
  21. DIOSMECTITE [Concomitant]
     Active Substance: MONTMORILLONITE
     Indication: DIARRHOEA
     Dosage: ONE UNSPECIFIED UNIT DAILY
     Route: 048
     Dates: start: 20160905

REACTIONS (3)
  - Anaemia [Not Recovered/Not Resolved]
  - Neutropenia [Recovered/Resolved]
  - Bone pain [Recovered/Resolved]

NARRATIVE: CASE EVENT DATE: 20161031
